FAERS Safety Report 8484913 (Version 2)
Quarter: 2014Q1

REPORT INFORMATION
  Report Type: Report from Study
  Country: DZ (occurrence: DZ)
  Receive Date: 20120330
  Receipt Date: 20140119
  Transmission Date: 20141002
  Serious: Yes (Other)
  Sender: FDA-Public Use
  Company Number: DZ-ROCHE-1051489

PATIENT
  Age: 43 Year
  Sex: Female

DRUGS (11)
  1. TRASTUZUMAB [Suspect]
     Indication: BREAST CANCER
     Route: 042
     Dates: start: 20120118
  2. TRASTUZUMAB [Suspect]
     Dosage: MAINTENANCE DOSE: 6 MG/ KG
     Route: 042
     Dates: start: 20110314, end: 20111229
  3. CAPECITABINE [Suspect]
     Indication: BREAST CANCER
     Route: 065
  4. 5-FLUOROURACIL [Suspect]
     Indication: BREAST CANCER
     Route: 065
  5. CYCLOPHOSPHAMIDE [Suspect]
     Indication: BREAST CANCER
     Route: 065
  6. DOCETAXEL [Suspect]
     Indication: BREAST CANCER
     Route: 065
  7. GEMCITABINE [Suspect]
     Indication: BREAST CANCER
     Route: 065
  8. PACLITAXEL [Suspect]
     Indication: BREAST CANCER
     Route: 065
  9. NAVELBINE [Suspect]
     Indication: BREAST CANCER
     Route: 065
  10. EPIRUBICIN [Suspect]
     Indication: BREAST CANCER
     Dosage: CUMULATED DOSE OF 180MG/ M2
     Route: 065
  11. ARIMIDEX [Concomitant]
     Route: 065
     Dates: start: 201201

REACTIONS (6)
  - Dyspnoea exertional [Not Recovered/Not Resolved]
  - Cough [Not Recovered/Not Resolved]
  - Ejection fraction decreased [Not Recovered/Not Resolved]
  - Cardiomegaly [Not Recovered/Not Resolved]
  - Pulmonary arterial hypertension [Not Recovered/Not Resolved]
  - Cardiac disorder [Not Recovered/Not Resolved]
